FAERS Safety Report 5324871-X (Version None)
Quarter: 2007Q2

REPORT INFORMATION
  Report Type: 
  Country: None (occurrence: None)
  Receive Date: 20070509
  Receipt Date: 20070424
  Transmission Date: 20071010
  Serious: Yes (Hospitalization, Other)
  Sender: FDA-Public Use
  Company Number: 2007RR-07072

PATIENT
  Age: 65 Year
  Sex: Male

DRUGS (5)
  1. TERAZOSIN HCL [Suspect]
  2. FLOMAX [Suspect]
  3. SERENOA REPENS(SERENOA REPENS) [Suspect]
  4. PREDNISOLONE [Concomitant]
  5. HOMATROPINE [Concomitant]

REACTIONS (2)
  - CHOROIDAL DETACHMENT [None]
  - VISUAL FIELD DEFECT [None]
